FAERS Safety Report 9252736 (Version 1)
Quarter: 2013Q2

REPORT INFORMATION
  Report Type: Spontaneous
  Country: US (occurrence: US)
  Receive Date: 20130424
  Receipt Date: 20130424
  Transmission Date: 20140414
  Serious: No
  Sender: FDA-Public Use
  Company Number: US-009507513-1304USA013058

PATIENT
  Age: 77 Year
  Sex: Male

DRUGS (1)
  1. AZASITE [Suspect]
     Dosage: 1% 1 BOTTLE OF 2.5
     Route: 031

REACTIONS (2)
  - Drug dose omission [Unknown]
  - Product packaging quantity issue [Unknown]
